FAERS Safety Report 16868947 (Version 1)
Quarter: 2019Q3

REPORT INFORMATION
  Report Type: Report from Study
  Country: IT (occurrence: IT)
  Receive Date: 20190930
  Receipt Date: 20190930
  Transmission Date: 20191005
  Serious: Yes (Other)
  Sender: FDA-Public Use
  Company Number: IT-PFIZER INC-2019416140

PATIENT
  Age: 79 Year
  Sex: Female

DRUGS (4)
  1. LAROXYL [Interacting]
     Active Substance: AMITRIPTYLINE HYDROCHLORIDE
     Indication: DEPRESSION
     Dosage: 4 GTT, DAILY
     Route: 048
     Dates: start: 20190602, end: 20190617
  2. CARDIRENE [Concomitant]
     Active Substance: ASPIRIN DL-LYSINE
     Dosage: 75 MG, UNK
  3. PRAZENE [Concomitant]
     Active Substance: PRAZEPAM
     Dosage: 10 MG, UNK
  4. XANAX [Suspect]
     Active Substance: ALPRAZOLAM
     Indication: ANXIETY
     Dosage: 1 DF, UNK
     Route: 048
     Dates: start: 20190616, end: 20190617

REACTIONS (5)
  - Asthenia [Recovering/Resolving]
  - Gait disturbance [Recovering/Resolving]
  - Drug interaction [Recovering/Resolving]
  - Somnolence [Recovering/Resolving]
  - Movement disorder [Recovering/Resolving]

NARRATIVE: CASE EVENT DATE: 20190617
